FAERS Safety Report 17220825 (Version 6)
Quarter: 2020Q1

REPORT INFORMATION
  Report Type: Report from Study
  Country: US (occurrence: US)
  Receive Date: 20191231
  Receipt Date: 20200213
  Transmission Date: 20200409
  Serious: Yes (Hospitalization, Other)
  Sender: FDA-Public Use
  Company Number: US-GILEAD-2019-0444993

PATIENT
  Age: 65 Year
  Sex: Female
  Weight: 85.4 kg

DRUGS (7)
  1. AMBRISENTAN [Suspect]
     Active Substance: AMBRISENTAN
     Indication: PULMONARY ARTERIAL HYPERTENSION
     Dosage: 5 MG, QD
     Route: 048
     Dates: start: 20190204
  2. TYVASO [Suspect]
     Active Substance: TREPROSTINIL
     Dosage: 18-54 UG, QID
     Route: 055
  3. TYVASO [Suspect]
     Active Substance: TREPROSTINIL
     Dosage: UNK
     Route: 055
  4. TADALAFIL. [Concomitant]
     Active Substance: TADALAFIL
  5. TYVASO [Suspect]
     Active Substance: TREPROSTINIL
     Indication: PULMONARY ARTERIAL HYPERTENSION
     Dosage: 60 UG, QID
     Route: 055
     Dates: start: 20190522
  6. DILTIAZEM. [Concomitant]
     Active Substance: DILTIAZEM
  7. TYVASO [Suspect]
     Active Substance: TREPROSTINIL
     Dosage: 60-120 UG, QID
     Route: 055

REACTIONS (12)
  - Oxygen saturation decreased [Unknown]
  - Influenza [Unknown]
  - Dizziness [Not Recovered/Not Resolved]
  - Lip swelling [Unknown]
  - Pulmonary arterial hypertension [Unknown]
  - Malaise [Unknown]
  - Chest pain [Unknown]
  - Dyspnoea [Unknown]
  - Anxiety [Unknown]
  - Dizziness postural [Not Recovered/Not Resolved]
  - Lung disorder [Unknown]
  - Insomnia [Unknown]

NARRATIVE: CASE EVENT DATE: 2019
